FAERS Safety Report 23521890 (Version 6)
Quarter: 2025Q3

REPORT INFORMATION
  Report Type: Report from Study
  Country: US (occurrence: US)
  Receive Date: 20240214
  Receipt Date: 20250804
  Transmission Date: 20251020
  Serious: Yes (Other)
  Sender: NOVARTIS
  Company Number: US-002147023-NVSC2024US002645

PATIENT
  Sex: Female

DRUGS (6)
  1. PIQRAY [Suspect]
     Active Substance: ALPELISIB
     Indication: Product used for unknown indication
     Route: 048
  2. PIQRAY [Suspect]
     Active Substance: ALPELISIB
     Route: 048
  3. PIQRAY [Suspect]
     Active Substance: ALPELISIB
     Route: 048
  4. PIQRAY [Suspect]
     Active Substance: ALPELISIB
     Dosage: 200 MG, QD
     Route: 048
  5. PIQRAY [Suspect]
     Active Substance: ALPELISIB
     Dosage: 200 MG, QD
     Route: 048
  6. FASLODEX [Concomitant]
     Active Substance: FULVESTRANT
     Indication: Product used for unknown indication
     Route: 065

REACTIONS (14)
  - Diabetes mellitus [Unknown]
  - Hypertension [Unknown]
  - Headache [Unknown]
  - Epistaxis [Unknown]
  - Ageusia [Unknown]
  - Skin fissures [Unknown]
  - Dry skin [Unknown]
  - Ocular hyperaemia [Unknown]
  - Dry mouth [Unknown]
  - Tumour marker decreased [Unknown]
  - Urethral disorder [Unknown]
  - Bone pain [Unknown]
  - Arthralgia [Unknown]
  - Gait inability [Unknown]
